FAERS Safety Report 5327407-2 (Version None)
Quarter: 2007Q2

REPORT INFORMATION
  Report Type: 
  Country: None (occurrence: None)
  Receive Date: 20070226
  Receipt Date: 20070103
  Transmission Date: 20071010
  Serious: Yes (Hospitalization)
  Sender: FDA-Public Use
  Company Number: WAES 0609USA04977

PATIENT
  Age: 47 Year
  Sex: Male
  Weight: 90.7194 kg

DRUGS (3)
  1. VYTORIN [Suspect]
     Indication: HYPERCHOLESTEROLAEMIA
     Dosage: 10-20 MG/DAILY/PO
     Route: 048
     Dates: end: 20060916
  2. INDOCIN [Concomitant]
  3. VALTREX [Concomitant]

REACTIONS (1)
  - RHABDOMYOLYSIS [None]
